FAERS Safety Report 4507597-1 (Version None)
Quarter: 2004Q4

REPORT INFORMATION
  Report Type: 
  Country: None (occurrence: None)
  Receive Date: 20040928
  Receipt Date: 20040720
  Transmission Date: 20050328
  Serious: Yes (Hospitalization)
  Sender: FDA-Public Use
  Company Number: 04P-163-0255741-00

PATIENT
  Age: 56 Year
  Sex: Female
  Weight: 76.2043 kg

DRUGS (13)
  1. HUMIRA [Suspect]
     Indication: RHEUMATOID ARTHRITIS
     Dosage: 40 MG, 1 IN 2 WK, SUBCUTANEOUS
     Route: 058
     Dates: start: 20031027, end: 20031201
  2. PREDNISONE [Concomitant]
  3. PAROXETINE HYDROCHLORIDE [Concomitant]
  4. ATENOLOL [Concomitant]
  5. ROFECOXIB [Concomitant]
  6. ACETYLSALICYLIC ACID [Concomitant]
  7. TOCOPHEROL CONCENTRATE CAP [Concomitant]
  8. ZINC [Concomitant]
  9. MAGNESIUM [Concomitant]
  10. MULTI-VITAMINS [Concomitant]
  11. IRON [Concomitant]
  12. SOY [Concomitant]
  13. COROL CALCIUM [Concomitant]

REACTIONS (2)
  - CELLULITIS [None]
  - INFECTION [None]
